FAERS Safety Report 7652588-5 (Version None)
Quarter: 2011Q3

REPORT INFORMATION
  Report Type: 
  Country: None (occurrence: None)
  Receive Date: 20110803
  Receipt Date: 20110728
  Transmission Date: 20111222
  Serious: Yes (Death)
  Sender: FDA-Public Use
  Company Number: US-AMGEN-USASP2011038586

PATIENT
  Sex: Male

DRUGS (3)
  1. NPLATE [Suspect]
     Indication: EVANS SYNDROME
  2. CORTICOSTEROIDS [Concomitant]
  3. NPLATE [Suspect]
     Indication: THROMBOCYTOPENIA

REACTIONS (2)
  - PNEUMONIA [None]
  - RESPIRATORY FAILURE [None]
